FAERS Safety Report 12725252 (Version 1)
Quarter: 2016Q3

REPORT INFORMATION
  Report Type: Spontaneous
  Country: US (occurrence: US)
  Receive Date: 20160906
  Receipt Date: 20160906
  Transmission Date: 20161109
  Serious: No
  Sender: FDA-Public Use
  Company Number: None

PATIENT
  Age: 61 Year
  Sex: Female

DRUGS (8)
  1. BACLOFEN. [Concomitant]
     Active Substance: BACLOFEN
  2. VITAMIN B [Concomitant]
     Active Substance: VITAMIN B
  3. DIAZEPAM. [Concomitant]
     Active Substance: DIAZEPAM
  4. REBIF [Suspect]
     Active Substance: INTERFERON BETA-1A
     Indication: MULTIPLE SCLEROSIS
     Route: 058
     Dates: start: 20140625
  5. TEGRETOL [Concomitant]
     Active Substance: CARBAMAZEPINE
  6. VITAMIN E [Concomitant]
     Active Substance: .ALPHA.-TOCOPHEROL
  7. DIOVAN [Concomitant]
     Active Substance: VALSARTAN
  8. VITAMIN D [Concomitant]
     Active Substance: CHOLECALCIFEROL

REACTIONS (2)
  - Cataract operation [None]
  - Multiple sclerosis relapse [None]

NARRATIVE: CASE EVENT DATE: 20160825
